FAERS Safety Report 12211013 (Version 1)
Quarter: 2016Q1

REPORT INFORMATION
  Report Type: Report from Study
  Country: FR (occurrence: FR)
  Receive Date: 20160325
  Receipt Date: 20160325
  Transmission Date: 20160526
  Serious: Yes (Hospitalization)
  Sender: FDA-Public Use
  Company Number: FR-PFIZER INC-2016157231

PATIENT
  Age: 75 Year
  Sex: Female
  Weight: 52 kg

DRUGS (11)
  1. DAFALGANHOP [Concomitant]
     Indication: PAIN
     Dosage: 1 G, UNK
  2. TANGANIL /01593101/ [Concomitant]
     Indication: DIZZINESS
     Dosage: 500 MG, UNK
  3. CACIT /07357001/ [Concomitant]
     Active Substance: CALCIUM\VITAMIN D
     Indication: OSTEOPOROSIS
     Dosage: 500 MG, 1X/DAY
     Route: 048
     Dates: start: 20160305
  4. PALBOCICLIB [Suspect]
     Active Substance: PALBOCICLIB
     Indication: BREAST CANCER METASTATIC
     Dosage: 125 MG, DAILY
     Dates: start: 20160219, end: 20160303
  5. PANTOPRAZOLE [Concomitant]
     Active Substance: PANTOPRAZOLE SODIUM
     Indication: VOMITING
  6. METOPIMAZINE [Concomitant]
     Active Substance: METOPIMAZINE
     Indication: NAUSEA
     Dosage: 7.5 MG, UNK
  7. FULVESTRANT [Concomitant]
     Active Substance: FULVESTRANT
     Indication: BREAST CANCER METASTATIC
     Dosage: UNK
     Dates: start: 20160219
  8. RANITIDINE [Concomitant]
     Active Substance: RANITIDINE\RANITIDINE HYDROCHLORIDE
     Indication: VOMITING
  9. PANTOPRAZOLE [Concomitant]
     Active Substance: PANTOPRAZOLE SODIUM
     Indication: ABDOMINAL PAIN UPPER
     Dosage: 20 MG, DAILY
     Dates: start: 20160304
  10. RANITIDINE [Concomitant]
     Active Substance: RANITIDINE\RANITIDINE HYDROCHLORIDE
     Indication: ABDOMINAL PAIN UPPER
     Dosage: 150 MG, DAILY
     Route: 048
     Dates: start: 20160304
  11. ALTEIS [Concomitant]
     Active Substance: OLMESARTAN MEDOXOMIL
     Indication: HYPERTENSION
     Dosage: 5 MG, UNK

REACTIONS (12)
  - Microembolism [Unknown]
  - Gait disturbance [Unknown]
  - Speech disorder [Unknown]
  - Anaemia [Not Recovered/Not Resolved]
  - General physical health deterioration [Unknown]
  - Weight decreased [Unknown]
  - Nausea [Recovering/Resolving]
  - Vomiting [Recovering/Resolving]
  - Hypertension [Not Recovered/Not Resolved]
  - Neutropenia [Not Recovered/Not Resolved]
  - Bone marrow failure [Not Recovered/Not Resolved]
  - Thrombocytopenia [Not Recovered/Not Resolved]

NARRATIVE: CASE EVENT DATE: 20160220
